FAERS Safety Report 8096572-9 (Version None)
Quarter: 2012Q1

REPORT INFORMATION
  Report Type: 
  Country: None (occurrence: None)
  Receive Date: 20120129
  Receipt Date: 20111116
  Transmission Date: 20120608
  Serious: No
  Sender: FDA-Public Use
  Company Number: US-ABBOTT-11P-163-0872672-00

PATIENT
  Sex: Female
  Weight: 78.996 kg

DRUGS (3)
  1. METHOTREXATE [Concomitant]
     Indication: RHEUMATOID ARTHRITIS
  2. PREDNISONE TAB [Concomitant]
     Indication: RHEUMATOID ARTHRITIS
  3. HUMIRA [Suspect]
     Indication: RHEUMATOID ARTHRITIS
     Route: 058
     Dates: start: 20110614, end: 20111110

REACTIONS (4)
  - INJECTION SITE RASH [None]
  - INJECTION SITE VESICLES [None]
  - INJECTION SITE URTICARIA [None]
  - INJECTION SITE REACTION [None]
